FAERS Safety Report 21041687 (Version 1)
Quarter: 2022Q3

REPORT INFORMATION
  Report Type: Spontaneous
  Country: US (occurrence: US)
  Receive Date: 20220705
  Receipt Date: 20220705
  Transmission Date: 20221026
  Serious: No
  Sender: FDA-Public Use
  Company Number: US-TEVA-2022-US-2051548

PATIENT
  Sex: Male

DRUGS (2)
  1. TORSEMIDE [Suspect]
     Active Substance: TORSEMIDE
     Indication: Product used for unknown indication
     Route: 065
  2. TORSEMIDE [Suspect]
     Active Substance: TORSEMIDE
     Dosage: 80 MILLIGRAM DAILY;
     Route: 065
     Dates: start: 20220302

REACTIONS (11)
  - Oedema peripheral [Unknown]
  - Weight fluctuation [Unknown]
  - Skin induration [Unknown]
  - Scrotal oedema [Unknown]
  - Fatigue [Unknown]
  - Dyspnoea [Unknown]
  - Weight increased [Unknown]
  - Rales [Unknown]
  - Decreased activity [Unknown]
  - Pain [Unknown]
  - Skin tightness [Unknown]
